FAERS Safety Report 8143085 (Version 4)
Quarter: 2015Q1

REPORT INFORMATION
  Report Type: Spontaneous
  Country: JP (occurrence: JP)
  Receive Date: 20110919
  Receipt Date: 20150331
  Transmission Date: 20150721
  Serious: Yes (Other)
  Sender: FDA-Public Use
  Company Number: JP-PFIZER INC-2011217451

PATIENT
  Age: 56 Year
  Sex: Female

DRUGS (1)
  1. SUTENT [Suspect]
     Active Substance: SUNITINIB MALATE
     Indication: RENAL CELL CARCINOMA
     Dosage: 50 MG, 1X/DAY
     Route: 048
     Dates: start: 20110723

REACTIONS (3)
  - Hyperthyroidism [Recovering/Resolving]
  - Renal cell carcinoma [Unknown]
  - Disease progression [Unknown]

NARRATIVE: CASE EVENT DATE: 20110912
